FAERS Safety Report 4878038-X (Version None)
Quarter: 2005Q4

REPORT INFORMATION
  Report Type: 
  Country: None (occurrence: None)
  Receive Date: 20051206
  Receipt Date: 20050927
  Transmission Date: 20060501
  Serious: No
  Sender: FDA-Public Use
  Company Number: USA0509107664

PATIENT
  Age: 22 Year
  Sex: Female
  Weight: 118 kg

DRUGS (1)
  1. CYMBALTA [Suspect]
     Indication: PAIN
     Dosage: 30 MG

REACTIONS (2)
  - NIGHTMARE [None]
  - POST-TRAUMATIC STRESS DISORDER [None]
